FAERS Safety Report 5374902-6 (Version None)
Quarter: 2007Q2

REPORT INFORMATION
  Report Type: 
  Country: None (occurrence: None)
  Receive Date: 20070629
  Receipt Date: 20070619
  Transmission Date: 20071010
  Serious: Yes (Death)
  Sender: FDA-Public Use
  Company Number: US-ROCHE-500422

PATIENT
  Age: 58 Year
  Sex: Female
  Weight: 53.5 kg

DRUGS (3)
  1. PEGASYS [Suspect]
     Route: 058
     Dates: start: 20060126, end: 20070122
  2. COPEGUS [Suspect]
     Route: 048
     Dates: start: 20060126, end: 20070122
  3. ACIPHEX [Concomitant]
     Dates: end: 20070315

REACTIONS (5)
  - DEPRESSION [None]
  - FATIGUE [None]
  - HYPERTENSION [None]
  - SUBARACHNOID HAEMORRHAGE [None]
  - THROMBOCYTOPENIA [None]
